FAERS Safety Report 9458164 (Version 1)
Quarter: 2013Q3

REPORT INFORMATION
  Report Type: Spontaneous
  Country: JP (occurrence: JP)
  Receive Date: 20130814
  Receipt Date: 20130814
  Transmission Date: 20140515
  Serious: Yes (Other)
  Sender: FDA-Public Use
  Company Number: JP-OTSUKA-JP-2013-12227

PATIENT
  Age: 57 Year
  Sex: Male

DRUGS (15)
  1. SAMSCA [Suspect]
     Indication: CONGESTIVE CARDIOMYOPATHY
     Dosage: 15 MG MILLIGRAM(S), QD
     Route: 048
     Dates: start: 20120224
  2. HALFDIGOXIN [Suspect]
     Dosage: 0.125 MG MILLIGRAM(S), QD
     Route: 048
     Dates: start: 20110805
  3. LASIX [Concomitant]
     Route: 048
  4. ZYLORIC [Concomitant]
     Route: 048
  5. GASLON N [Concomitant]
     Route: 048
  6. ARTIST [Concomitant]
     Route: 048
  7. FLUITRAN [Concomitant]
     Route: 048
  8. SELARA [Concomitant]
     Route: 048
  9. OMEPRAZOLE [Concomitant]
     Route: 048
  10. WARFARIN [Concomitant]
     Route: 048
  11. FERRUM [Concomitant]
     Route: 048
  12. AMOBAN [Concomitant]
     Route: 048
  13. DEPAS [Concomitant]
     Route: 048
  14. SLOW K [Concomitant]
     Route: 048
  15. GLACTIV [Concomitant]
     Route: 048

REACTIONS (5)
  - Drug interaction [Unknown]
  - Toxicity to various agents [Unknown]
  - Vision blurred [Not Recovered/Not Resolved]
  - Gait disturbance [Not Recovered/Not Resolved]
  - Abnormal sensation in eye [Not Recovered/Not Resolved]
